FAERS Safety Report 10027525 (Version 1)
Quarter: 2014Q1

REPORT INFORMATION
  Report Type: Spontaneous
  Country: US (occurrence: US)
  Receive Date: 20140321
  Receipt Date: 20140321
  Transmission Date: 20141002
  Serious: No
  Sender: FDA-Public Use
  Company Number: US-PFIZER INC-2014081017

PATIENT
  Sex: Male

DRUGS (1)
  1. VENLAFAXINE XR [Suspect]
     Dosage: UNK

REACTIONS (2)
  - Product commingling [Unknown]
  - Heart rate increased [Unknown]
